FAERS Safety Report 4994172-8 (Version None)
Quarter: 2006Q2

REPORT INFORMATION
  Report Type: 
  Country: None (occurrence: None)
  Receive Date: 20060503
  Receipt Date: 20060418
  Transmission Date: 20061013
  Serious: Yes (Death)
  Sender: FDA-Public Use
  Company Number: 2006JP000047

PATIENT
  Age: 71 Year
  Sex: Male
  Weight: 62 kg

DRUGS (13)
  1. PROGRAF [Suspect]
     Indication: RHEUMATOID ARTHRITIS
     Dosage: 2 MG, UID/QD, ORAL
     Route: 048
     Dates: start: 20051119, end: 20060103
  2. ISOSORBIDE MONONITRATE [Concomitant]
  3. TICPILONE          (TICLOPIDINE HYDROCHLORIDE) [Concomitant]
  4. ISOSORBIDE DINITRATE [Concomitant]
  5. PREDOHAN (PREDNISOLONE) TABLET [Concomitant]
  6. HERBESSOR R (DILTIAZEM HYDROCHLORIDE) CAPSULE [Concomitant]
  7. ZANTAC [Concomitant]
  8. LUPRAC (TORASEMIDE) TABLET [Concomitant]
  9. TANATRIL   ALGOL   (IMIDAPRIL HYDROCHLORIDE) TABLET [Concomitant]
  10. SALOBEL TABLET [Concomitant]
  11. ZYLORIC TABLET [Concomitant]
  12. TICLOPIDINE HCL [Concomitant]
  13. ADOFEED             (FLURBIPROFEN) [Concomitant]

REACTIONS (6)
  - ACUTE RESPIRATORY FAILURE [None]
  - ATRIOVENTRICULAR BLOCK [None]
  - CARDIAC ARREST [None]
  - CARDIAC FAILURE [None]
  - INTERSTITIAL LUNG DISEASE [None]
  - TACHYCARDIA [None]
